FAERS Safety Report 25826398 (Version 6)
Quarter: 2025Q4

REPORT INFORMATION
  Report Type: Report from Study
  Country: US (occurrence: US)
  Receive Date: 20250920
  Receipt Date: 20251230
  Transmission Date: 20260118
  Serious: Yes (Hospitalization, Other)
  Sender: ABBVIE
  Company Number: US-ABBVIE-6465180

PATIENT
  Age: 69 Year
  Sex: Female

DRUGS (4)
  1. SKYRIZI [Suspect]
     Active Substance: RISANKIZUMAB-RZAA
     Indication: Crohn^s disease
     Route: 058
     Dates: start: 20251222
  2. SKYRIZI [Suspect]
     Active Substance: RISANKIZUMAB-RZAA
     Indication: Psoriasis
     Dosage: LAST ADMIN DATE- 2024
     Route: 058
     Dates: start: 202409
  3. SKYRIZI [Suspect]
     Active Substance: RISANKIZUMAB-RZAA
     Dosage: LAST ADMIN DATE- 2024
     Route: 058
     Dates: start: 20241213
  4. SKYRIZI [Suspect]
     Active Substance: RISANKIZUMAB-RZAA
     Dosage: LAST ADMIN DATE- 2025
     Route: 058
     Dates: start: 20250101

REACTIONS (16)
  - Spinal operation [Recovering/Resolving]
  - Gait inability [Unknown]
  - Feeding disorder [Unknown]
  - Post procedural complication [Unknown]
  - Anaesthetic complication [Unknown]
  - Hypotension [Unknown]
  - Crohn^s disease [Unknown]
  - Frequent bowel movements [Unknown]
  - Hypertension [Unknown]
  - Gastrointestinal obstruction [Unknown]
  - Biliary tract disorder [Unknown]
  - Drug ineffective [Unknown]
  - Off label use [Unknown]
  - Hypophagia [Unknown]
  - Pain [Unknown]
  - Unevaluable event [Unknown]

NARRATIVE: CASE EVENT DATE: 20240101
